FAERS Safety Report 5630692-0 (Version None)
Quarter: 2008Q1

REPORT INFORMATION
  Report Type: 
  Country: None (occurrence: None)
  Receive Date: 20080219
  Receipt Date: 20020604
  Transmission Date: 20080703
  Serious: Yes (Other)
  Sender: FDA-Public Use
  Company Number: US-MERCK-0205USA01538

PATIENT
  Age: 85 Year
  Sex: Male

DRUGS (5)
  1. TIMOPTIC-XE [Suspect]
     Route: 047
     Dates: start: 20020511, end: 20020511
  2. CLEAR EYES [Concomitant]
     Route: 065
  3. MEGACE [Concomitant]
     Route: 065
  4. ZOLOFT [Concomitant]
     Route: 065
  5. MEGESTROL ACETATE [Concomitant]
     Route: 065

REACTIONS (1)
  - BLINDNESS TRANSIENT [None]
